FAERS Safety Report 9699569 (Version 1)
Quarter: 2013Q4

REPORT INFORMATION
  Report Type: Spontaneous
  Country: TR (occurrence: TR)
  Receive Date: 20131120
  Receipt Date: 20131120
  Transmission Date: 20140711
  Serious: Yes (Other)
  Sender: FDA-Public Use
  Company Number: TR-MYLANLABS-2013S1025530

PATIENT
  Age: 47 Year
  Sex: Female

DRUGS (4)
  1. PROPOFOL [Suspect]
     Indication: ANAESTHESIA
     Route: 065
  2. VALPROATE [Interacting]
     Indication: BIPOLAR I DISORDER
     Dosage: 1000MG/DAY
     Route: 065
  3. FLUPENTIXOL [Concomitant]
     Indication: BIPOLAR I DISORDER
     Dosage: 6MG/DAY
     Route: 065
  4. QUETIAPINE [Concomitant]
     Indication: BIPOLAR I DISORDER
     Dosage: 9000MG/DAY [SIC]
     Route: 065

REACTIONS (2)
  - Hyperammonaemic encephalopathy [Recovering/Resolving]
  - Drug interaction [Recovering/Resolving]
